FAERS Safety Report 17133244 (Version 1)
Quarter: 2019Q4

REPORT INFORMATION
  Report Type: Spontaneous
  Country: US (occurrence: US)
  Receive Date: 20191209
  Receipt Date: 20191209
  Transmission Date: 20200122
  Serious: Yes (Other)
  Sender: FDA-Public Use
  Company Number: None

PATIENT
  Age: 70 Year
  Sex: Male
  Weight: 76.2 kg

DRUGS (6)
  1. PHENYLEPHRINE 2.5% EYE [Concomitant]
     Dates: start: 20191209, end: 20191209
  2. TROPICAMIDE 1% EYE [Concomitant]
     Dates: start: 20191209, end: 20191209
  3. ACETAMINOPHEN 1000 MG TAB [Concomitant]
     Dates: start: 20191209, end: 20191209
  4. PROPARACAINE OPTHALMIC SOLUTION [Suspect]
     Active Substance: PROPARACAINE HYDROCHLORIDE
     Indication: CATARACT OPERATION
     Dosage: ?          OTHER FREQUENCY:EVERY 30 MINUTES;?
     Route: 047
     Dates: start: 20191209, end: 20191209
  5. ACETAZOLAMIDE 500 MG TABLET [Concomitant]
     Dates: start: 20191209, end: 20191209
  6. CYCLOPENTOLATE 1% EYE [Concomitant]
     Dates: start: 20191209, end: 20191209

REACTIONS (1)
  - Drug ineffective [None]

NARRATIVE: CASE EVENT DATE: 20191209
